FAERS Safety Report 5406046-9 (Version None)
Quarter: 2007Q3

REPORT INFORMATION
  Report Type: 
  Country: None (occurrence: None)
  Receive Date: 20070806
  Receipt Date: 20070802
  Transmission Date: 20080115
  Serious: Yes (Hospitalization)
  Sender: FDA-Public Use
  Company Number: B0468767A

PATIENT
  Age: 38 Year
  Sex: Male

DRUGS (5)
  1. CEFUROXIME [Suspect]
     Indication: BRONCHITIS
     Route: 048
     Dates: start: 20070218
  2. BIOCALYPTOL-PHOLCODINE [Concomitant]
     Route: 065
  3. SOLUFEN [Concomitant]
     Route: 065
     Dates: start: 20070218
  4. ACETAMINOPHEN [Concomitant]
     Route: 065
  5. XYZAL [Concomitant]
     Route: 065
     Dates: start: 20070218

REACTIONS (11)
  - ASTHENIA [None]
  - BLOOD BILIRUBIN INCREASED [None]
  - COOMBS TEST POSITIVE [None]
  - COUGH [None]
  - HAEMOLYTIC ANAEMIA [None]
  - HAPTOGLOBIN DECREASED [None]
  - HEPATOCELLULAR DAMAGE [None]
  - JAUNDICE [None]
  - MICROCYTIC ANAEMIA [None]
  - NAUSEA [None]
  - PALLOR [None]
